FAERS Safety Report 11246159 (Version 2)
Quarter: 2015Q3

REPORT INFORMATION
  Report Type: Spontaneous
  Country: US (occurrence: US)
  Receive Date: 20150708
  Receipt Date: 20150721
  Transmission Date: 20151125
  Serious: Yes (Other)
  Sender: FDA-Public Use
  Company Number: US-AMGEN-USASP2015066042

PATIENT
  Age: 52 Year
  Sex: Female

DRUGS (1)
  1. ENBREL [Suspect]
     Active Substance: ETANERCEPT
     Indication: RHEUMATOID ARTHRITIS
     Dosage: 50 MG, QWK
     Route: 065
     Dates: start: 201405, end: 2015

REACTIONS (8)
  - Feeling hot [Recovered/Resolved]
  - Connective tissue disorder [Recovered/Resolved]
  - Synovial cyst [Unknown]
  - Bone pain [Recovered/Resolved]
  - Back pain [Not Recovered/Not Resolved]
  - Chondrolysis [Recovered/Resolved]
  - Arthropathy [Not Recovered/Not Resolved]
  - Haemorrhage [Recovered/Resolved]

NARRATIVE: CASE EVENT DATE: 20150617
